FAERS Safety Report 13294903 (Version 2)
Quarter: 2017Q2

REPORT INFORMATION
  Report Type: Spontaneous
  Country: US (occurrence: US)
  Receive Date: 20170303
  Receipt Date: 20170412
  Transmission Date: 20170830
  Serious: Yes (Other)
  Sender: FDA-Public Use
  Company Number: US-JNJFOC-20170209926

PATIENT
  Age: 70 Year
  Sex: Female
  Weight: 81.65 kg

DRUGS (5)
  1. XARELTO [Suspect]
     Active Substance: RIVAROXABAN
     Indication: KNEE ARTHROPLASTY
     Route: 048
     Dates: start: 20170112, end: 20170115
  2. XARELTO [Suspect]
     Active Substance: RIVAROXABAN
     Indication: THROMBOSIS PROPHYLAXIS
     Route: 048
     Dates: start: 20170112, end: 20170115
  3. ASPIRIN. [Suspect]
     Active Substance: ASPIRIN
     Indication: KNEE ARTHROPLASTY
     Route: 048
     Dates: start: 201701
  4. LEVOTHYROXINE. [Concomitant]
     Active Substance: LEVOTHYROXINE
     Indication: THYROID DISORDER
     Route: 048
  5. VITAMINE C [Concomitant]
     Active Substance: ASCORBIC ACID
     Indication: PROMOTION OF WOUND HEALING
     Route: 048
     Dates: start: 2017

REACTIONS (4)
  - Peripheral swelling [Unknown]
  - Adverse event [Unknown]
  - Erythema [Recovered/Resolved]
  - Internal haemorrhage [Recovered/Resolved]

NARRATIVE: CASE EVENT DATE: 20170113
